FAERS Safety Report 8501069-5 (Version None)
Quarter: 2012Q2

REPORT INFORMATION
  Report Type: 
  Country: None (occurrence: None)
  Receive Date: 20120405
  Receipt Date: 20110307
  Transmission Date: 20120825
  Serious: Yes (Other)
  Sender: FDA-Public Use
  Company Number: PHHY2011US18849

PATIENT
  Age: 75 Year
  Sex: Female
  Weight: 100 kg

DRUGS (1)
  1. RECLAST [Suspect]
     Dosage: 5 MG PER YEAR, INTRAVENOUS
     Route: 042
     Dates: start: 20101201

REACTIONS (1)
  - RENAL FAILURE ACUTE [None]
